FAERS Safety Report 6642056-1 (Version None)
Quarter: 2010Q1

REPORT INFORMATION
  Report Type: 
  Country: None (occurrence: None)
  Receive Date: 20100319
  Receipt Date: 20100119
  Transmission Date: 20100710
  Serious: Yes (Hospitalization)
  Sender: FDA-Public Use
  Company Number: PHHO2009FR15415

PATIENT
  Sex: Male
  Weight: 54 kg

DRUGS (4)
  1. STI571/CGP57148B T35717+TAB [Suspect]
     Indication: GASTROINTESTINAL STROMAL TUMOUR
     Dosage: 400MG
     Route: 048
     Dates: start: 20091109, end: 20091210
  2. PARIET [Concomitant]
     Indication: PROPHYLAXIS
  3. ALDACTONE [Concomitant]
     Indication: HYPERTENSION
  4. TARDYFERON [Concomitant]
     Indication: ANAEMIA

REACTIONS (1)
  - ANAEMIA [None]
